FAERS Safety Report 8779742 (Version 1)
Quarter: 2012Q4

REPORT INFORMATION
  Report Type: 
  Country: US (occurrence: US)
  Receive Date: 20120912
  Receipt Date: 20120912
  Transmission Date: 20130627
  Serious: No
  Sender: FDA-Public Use
  Company Number: US-TEVA-341444USA

PATIENT
  Sex: Female
  Weight: 54.48 kg

DRUGS (3)
  1. QNASL [Suspect]
     Indication: PERENNIAL ALLERGY
     Dosage: 1-2 sprays en daily
     Route: 045
     Dates: start: 201205, end: 201205
  2. LANSOPRAZOLE [Concomitant]
     Indication: GASTRIC DISORDER
  3. NITROFURANTOIN [Concomitant]
     Indication: URINARY TRACT INFECTION

REACTIONS (3)
  - Epistaxis [Unknown]
  - Nasal discomfort [Unknown]
  - Headache [Unknown]
